FAERS Safety Report 9377632 (Version 1)
Quarter: 2013Q3

REPORT INFORMATION
  Report Type: Spontaneous
  Country: GB (occurrence: GB)
  Receive Date: 20130701
  Receipt Date: 20130701
  Transmission Date: 20140515
  Serious: Yes (Other)
  Sender: FDA-Public Use
  Company Number: GB-JNJFOC-20130618389

PATIENT
  Age: 67 Year
  Sex: Male
  Weight: 109.7 kg

DRUGS (12)
  1. XARELTO [Suspect]
     Indication: PRODUCT USED FOR UNKNOWN INDICATION
     Route: 048
     Dates: start: 20130516, end: 20130608
  2. NAPROXEN [Concomitant]
     Route: 065
     Dates: start: 20130320, end: 20130403
  3. CO-CODAMOL [Concomitant]
     Route: 065
     Dates: start: 20130404, end: 20130515
  4. ESOMEPRAZOLE [Concomitant]
     Route: 065
     Dates: start: 20130214, end: 20130422
  5. SULFINPYRAZONE [Concomitant]
     Route: 065
     Dates: start: 20130214, end: 20130520
  6. RAMIPRIL [Concomitant]
     Route: 065
     Dates: start: 20130214
  7. RANITIDINE [Concomitant]
     Route: 065
     Dates: start: 20130214
  8. ROSUVASTATIN [Concomitant]
     Route: 065
     Dates: start: 20130116, end: 20130411
  9. SLOZEM [Concomitant]
     Route: 065
     Dates: start: 20130503, end: 20130531
  10. CLOPIDOGREL [Concomitant]
     Route: 065
     Dates: start: 20130214, end: 20130520
  11. ATORVASTATIN [Concomitant]
     Route: 065
     Dates: start: 20130307, end: 20130404
  12. GAVISCON ADVANCE [Concomitant]
     Route: 065
     Dates: start: 20130325, end: 20130406

REACTIONS (4)
  - Abdominal pain [Recovered/Resolved]
  - Dry mouth [Recovered/Resolved]
  - Constipation [Recovered/Resolved]
  - Gastrointestinal disorder [Recovered/Resolved]
